FAERS Safety Report 9686565 (Version 2)
Quarter: 2013Q4

REPORT INFORMATION
  Report Type: Report from Study
  Country: US (occurrence: US)
  Receive Date: 20131113
  Receipt Date: 20131113
  Transmission Date: 20140711
  Serious: Yes (Hospitalization)
  Sender: FDA-Public Use
  Company Number: US-GLAXOSMITHKLINE-A0857766A

PATIENT
  Age: 77 Year
  Sex: Male

DRUGS (3)
  1. ELTROMBOPAG [Suspect]
     Indication: APLASTIC ANAEMIA
     Route: 048
     Dates: start: 20100219
  2. EXJADE [Concomitant]
  3. REGLAN [Concomitant]

REACTIONS (6)
  - Abdominal discomfort [Recovered/Resolved]
  - Asthenia [Unknown]
  - Nausea [Unknown]
  - Malaise [Unknown]
  - Decreased appetite [Unknown]
  - Pyrexia [Unknown]
